FAERS Safety Report 14632521 (Version 1)
Quarter: 2018Q1

REPORT INFORMATION
  Report Type: Report from Study
  Country: MX (occurrence: MX)
  Receive Date: 20180313
  Receipt Date: 20180313
  Transmission Date: 20180509
  Serious: Yes (Hospitalization, Other)
  Sender: FDA-Public Use
  Company Number: PHHY2018MX035827

PATIENT
  Age: 43 Year
  Sex: Male

DRUGS (2)
  1. CO-DIOVAN [Suspect]
     Active Substance: HYDROCHLOROTHIAZIDE\VALSARTAN
     Indication: HYPERTENSION
     Dosage: 1 DF (25 MG HYDROCHLOROTHIAZIDE/160 MG VALSARTAN), QD
     Route: 048
     Dates: start: 2013, end: 201702
  2. CO-DIOVAN [Suspect]
     Active Substance: HYDROCHLOROTHIAZIDE\VALSARTAN
     Dosage: 1 DF (12.5 MG HYDROCHLOROTHIAZIDE/160 MG VALSARTAN), QD
     Route: 048
     Dates: start: 20180211, end: 20180226

REACTIONS (7)
  - Tooth infection [Unknown]
  - Facial pain [Recovered/Resolved with Sequelae]
  - Headache [Recovering/Resolving]
  - Malaise [Recovered/Resolved]
  - Toothache [Recovered/Resolved with Sequelae]
  - Hypertension [Recovered/Resolved with Sequelae]
  - Eye pain [Recovered/Resolved with Sequelae]

NARRATIVE: CASE EVENT DATE: 20180209
